FAERS Safety Report 13982914 (Version 1)
Quarter: 2017Q3

REPORT INFORMATION
  Report Type: Other
  Country: ES (occurrence: ES)
  Receive Date: 20170918
  Receipt Date: 20170918
  Transmission Date: 20171128
  Serious: Yes (Death, Hospitalization)
  Sender: FDA-Public Use
  Company Number: ES-ARIAD-2017ES008904

PATIENT

DRUGS (1)
  1. ICLUSIG [Suspect]
     Active Substance: PONATINIB
     Indication: CHRONIC MYELOID LEUKAEMIA
     Dosage: 30 MG, QD
     Route: 048
     Dates: start: 20170803, end: 20170808

REACTIONS (5)
  - Off label use [Unknown]
  - Fungal infection [Fatal]
  - Central nervous system haemorrhage [Fatal]
  - Drug administered to patient of inappropriate age [Unknown]
  - Constipation [Unknown]

NARRATIVE: CASE EVENT DATE: 20170805
